FAERS Safety Report 4733290-6 (Version None)
Quarter: 2005Q3

REPORT INFORMATION
  Report Type: 
  Country: None (occurrence: None)
  Receive Date: 20050725
  Receipt Date: 20041015
  Transmission Date: 20060218
  Serious: Yes (Other)
  Sender: FDA-Public Use
  Company Number: USA-2004-0017250

PATIENT
  Age: 21 Year
  Sex: Male

DRUGS (1)
  1. MS CONTIN TABLETS (SIMILAR TO NDA 19-516) (MORPHINE SULFATE) [Suspect]

REACTIONS (1)
  - DRUG ABUSER [None]
